FAERS Safety Report 14340226 (Version 1)
Quarter: 2018Q1

REPORT INFORMATION
  Report Type: Report from Study
  Country: None (occurrence: BR)
  Receive Date: 20180101
  Receipt Date: 20180101
  Transmission Date: 20180509
  Serious: Yes (Disabling)
  Sender: FDA-Public Use
  Company Number: BR-ABBVIE-17K-020-2206940-00

PATIENT
  Sex: Female

DRUGS (1)
  1. HUMIRA [Suspect]
     Active Substance: ADALIMUMAB
     Indication: RHEUMATOID ARTHRITIS
     Route: 058
     Dates: start: 20140808, end: 20171124

REACTIONS (7)
  - Pneumonia [Unknown]
  - Urinary tract infection [Unknown]
  - Gait inability [Unknown]
  - Hypophagia [Unknown]
  - Speech disorder [Unknown]
  - Malaise [Unknown]
  - Influenza [Unknown]
